FAERS Safety Report 17737194 (Version 1)
Quarter: 2020Q2

REPORT INFORMATION
  Report Type: Spontaneous
  Country: PT (occurrence: PT)
  Receive Date: 20200502
  Receipt Date: 20200502
  Transmission Date: 20200714
  Serious: Yes (Other)
  Sender: FDA-Public Use
  Company Number: PT-TEVA-2020-PT-1228865

PATIENT
  Age: 30 Year
  Sex: Female

DRUGS (1)
  1. CISPLATINA TEVA [Suspect]
     Active Substance: CISPLATIN
     Route: 042
     Dates: start: 20200413, end: 20200413

REACTIONS (3)
  - Erythema [Recovered/Resolved]
  - Flushing [Recovered/Resolved]
  - Dyspnoea [Recovered/Resolved]

NARRATIVE: CASE EVENT DATE: 20200413
